FAERS Safety Report 4336076-X (Version None)
Quarter: 2004Q1

REPORT INFORMATION
  Report Type: 
  Country: None (occurrence: None)
  Receive Date: 20040331
  Receipt Date: 20030501
  Transmission Date: 20041129
  Serious: Yes (Hospitalization)
  Sender: FDA-Public Use
  Company Number: 2003157963US

PATIENT
  Age: 60 Year
  Sex: Female

DRUGS (1)
  1. ADRIAMYCIN PFS (DOXORUICIN HYDROCHLORIDE) SOLUTION, STERILE [Suspect]
     Indication: BREAST CANCER
     Dates: end: 20020401

REACTIONS (1)
  - CARDIAC FAILURE CONGESTIVE [None]
